FAERS Safety Report 10978300 (Version 2)
Quarter: 2015Q2

REPORT INFORMATION
  Report Type: Report from Study
  Country: BR (occurrence: BR)
  Receive Date: 20150402
  Receipt Date: 20150408
  Transmission Date: 20150821
  Serious: Yes (Life-Threatening, Hospitalization, Other)
  Sender: FDA-Public Use
  Company Number: PHHY2015BR039059

PATIENT
  Age: 70 Year
  Sex: Female
  Weight: 75 kg

DRUGS (5)
  1. BENICAR AMLO [Suspect]
     Active Substance: AMLODIPINE BESYLATE\OLMESARTAN MEDOXOMIL
     Indication: PRODUCT USED FOR UNKNOWN INDICATION
     Dosage: 1 DF, QD
     Route: 065
  2. LOSARTAN [Suspect]
     Active Substance: LOSARTAN
     Dosage: 100 MG, UNK
     Route: 065
  3. LOSARTAN [Suspect]
     Active Substance: LOSARTAN
     Dosage: 1 DF (50 MG), QD
     Route: 065
     Dates: start: 2012, end: 20150228
  4. LOSARTAN [Suspect]
     Active Substance: LOSARTAN
     Indication: HYPERTENSION
     Dosage: 150 MG, UNK
     Route: 065
  5. RASILEZ [Suspect]
     Active Substance: ALISKIREN
     Indication: HYPERTENSION
     Dosage: 1 DF (150 MG), QD
     Route: 065
     Dates: start: 2011, end: 2012

REACTIONS (10)
  - Cataract [Unknown]
  - Feeling abnormal [Unknown]
  - Depression [Unknown]
  - Viral infection [Unknown]
  - Hypotension [Unknown]
  - Presyncope [Unknown]
  - Abasia [Unknown]
  - Blood pressure increased [Unknown]
  - Decreased appetite [Unknown]
  - Asthenia [Unknown]
